FAERS Safety Report 7159746-7 (Version None)
Quarter: 2010Q4

REPORT INFORMATION
  Report Type: 
  Country: None (occurrence: None)
  Receive Date: 20101214
  Receipt Date: 20101021
  Transmission Date: 20110411
  Serious: No
  Sender: FDA-Public Use
  Company Number: US-ASTRAZENECA-2010SE50097

PATIENT
  Age: 50 Year
  Sex: Male

DRUGS (3)
  1. CRESTOR [Suspect]
     Indication: DYSLIPIDAEMIA
     Route: 048
     Dates: end: 20100101
  2. CRESTOR [Suspect]
     Route: 048
     Dates: start: 20100101
  3. CRESTOR [Suspect]
     Route: 048
     Dates: start: 20100101

REACTIONS (3)
  - HYPERTENSION [None]
  - NIGHTMARE [None]
  - SLEEP DISORDER [None]
